FAERS Safety Report 18618482 (Version 1)
Quarter: 2020Q4

REPORT INFORMATION
  Report Type: Spontaneous
  Country: ES (occurrence: ES)
  Receive Date: 20201215
  Receipt Date: 20201215
  Transmission Date: 20210114
  Serious: Yes (Hospitalization, Other)
  Sender: FDA-Public Use
  Company Number: ES-MYLANLABS-2020M1101395

PATIENT
  Age: 92 Year
  Sex: Female

DRUGS (6)
  1. SERETIDE [Concomitant]
     Active Substance: FLUTICASONE PROPIONATE\SALMETEROL XINAFOATE
     Dosage: 25 MCG/ 250 MCG/ INHALATION,INHALATION SUSPENSION IN PRESSURE CONTAINER, 10 INHALERS OF 120 DOSES
  2. LOSARTAN. [Concomitant]
     Active Substance: LOSARTAN
     Dosage: 28 TABLETS
  3. SEGURIL [Concomitant]
     Active Substance: FUROSEMIDE
     Dosage: 30 TABLETS
  4. VALIUM [Concomitant]
     Active Substance: DIAZEPAM
     Dosage: 25 TABLETS
  5. FENTANYL TRANSDERMAL SYSTEM [Suspect]
     Active Substance: FENTANYL
     Indication: PAIN
     Dosage: 1 PATCH EVERY 3 DAYS, 25 MCG/H
     Route: 062
     Dates: start: 20200815, end: 20200820
  6. OMEPRAZOL                          /00661201/ [Concomitant]
     Active Substance: OMEPRAZOLE
     Dosage: 56 CAPSULES

REACTIONS (1)
  - Fall [Recovered/Resolved]

NARRATIVE: CASE EVENT DATE: 20200819
